FAERS Safety Report 9554581 (Version 1)
Quarter: 2013Q3

REPORT INFORMATION
  Report Type: Spontaneous
  Country: US (occurrence: US)
  Receive Date: 20130925
  Receipt Date: 20130925
  Transmission Date: 20140515
  Serious: Yes (Other)
  Sender: FDA-Public Use
  Company Number: US-JNJFOC-20130907623

PATIENT
  Age: 38 Year
  Sex: Male
  Weight: 127.01 kg

DRUGS (2)
  1. BENADRYL [Suspect]
     Route: 048
  2. BENADRYL [Suspect]
     Indication: ARTHROPOD STING
     Route: 048
     Dates: start: 20130825, end: 20130825

REACTIONS (2)
  - Erectile dysfunction [Not Recovered/Not Resolved]
  - Product label issue [Unknown]
